FAERS Safety Report 8295588-7 (Version None)
Quarter: 2012Q2

REPORT INFORMATION
  Report Type: 
  Country: None (occurrence: None)
  Receive Date: 20120416
  Receipt Date: 20120404
  Transmission Date: 20120825
  Serious: Yes (Hospitalization, Other)
  Sender: FDA-Public Use
  Company Number: NSR_00525_2012

PATIENT
  Age: 33 Year
  Sex: Female

DRUGS (4)
  1. HYDROXYZINE [Suspect]
     Indication: PSORIASIS
     Dosage: (DF ORAL) ; (ORAL) ; (DF)
     Route: 048
     Dates: start: 20090601
  2. HYDROXYZINE [Suspect]
     Indication: PSORIASIS
     Dosage: (DF ORAL) ; (ORAL) ; (DF)
     Route: 048
     Dates: start: 20100601
  3. VASELINE /00473501/ [Concomitant]
  4. BETAMETHASONE [Concomitant]

REACTIONS (9)
  - DERMATITIS EXFOLIATIVE [None]
  - CHILLS [None]
  - RASH ERYTHEMATOUS [None]
  - RASH PRURITIC [None]
  - RASH MACULO-PAPULAR [None]
  - PYREXIA [None]
  - WHITE BLOOD CELL COUNT INCREASED [None]
  - SKIN EXFOLIATION [None]
  - OEDEMA PERIPHERAL [None]
